FAERS Safety Report 25170935 (Version 2)
Quarter: 2025Q2

REPORT INFORMATION
  Report Type: Spontaneous
  Country: US (occurrence: US)
  Receive Date: 20250408
  Receipt Date: 20250523
  Transmission Date: 20250716
  Serious: Yes (Other)
  Sender: AUROBINDO
  Company Number: US-AUROBINDO-AUR-APL-2025-018293

PATIENT
  Age: 53 Year
  Sex: Female

DRUGS (4)
  1. HYDROCORTISONE [Suspect]
     Active Substance: HYDROCORTISONE
     Indication: Autonomic neuropathy
     Route: 065
  2. MIDODRINE HYDROCHLORIDE [Suspect]
     Active Substance: MIDODRINE HYDROCHLORIDE
     Indication: Autonomic neuropathy
     Route: 065
  3. FLUDROCORTISONE [Suspect]
     Active Substance: FLUDROCORTISONE
     Indication: Autonomic neuropathy
     Route: 065
  4. DROXIDOPA [Concomitant]
     Active Substance: DROXIDOPA
     Indication: Syncope
     Route: 065

REACTIONS (1)
  - Drug ineffective [Unknown]
